FAERS Safety Report 5072338-9 (Version None)
Quarter: 2006Q3

REPORT INFORMATION
  Report Type: 
  Country: None (occurrence: None)
  Receive Date: 20060807
  Receipt Date: 20060731
  Transmission Date: 20061208
  Serious: Yes (Death)
  Sender: FDA-Public Use
  Company Number: 2006SE04196

PATIENT
  Age: 21 Year
  Sex: Female

DRUGS (2)
  1. DIPRIVAN [Suspect]
     Indication: ANAESTHESIA
     Route: 042
     Dates: start: 20060727, end: 20060727
  2. MIDARINE [Suspect]
     Indication: MUSCLE RELAXANT THERAPY
     Route: 065
     Dates: start: 20060727, end: 20060727

REACTIONS (5)
  - BRONCHOSTENOSIS [None]
  - CIRCUMORAL OEDEMA [None]
  - LARYNGEAL OEDEMA [None]
  - RASH [None]
  - TONGUE OEDEMA [None]
